FAERS Safety Report 4655101-X (Version None)
Quarter: 2005Q2

REPORT INFORMATION
  Report Type: 
  Country: None (occurrence: None)
  Receive Date: 20050505
  Receipt Date: 20050422
  Transmission Date: 20051028
  Serious: Yes (Hospitalization)
  Sender: FDA-Public Use
  Company Number: HQWYE182522APR05

PATIENT
  Age: 65 Year
  Sex: Female

DRUGS (6)
  1. INIPOMP (PANTOPRAZOLE, INJECTION) [Suspect]
     Indication: MELAENA
     Dosage: 40 MG  SOME TIME (S) INTRAVENOUS
     Route: 042
     Dates: start: 20050315, end: 20050301
  2. RANITIDINE HYDROCHLORIDE [Concomitant]
  3. LEMOXIL (BROMAZEPAM) [Concomitant]
  4. POTASSIUM CHLORIDE [Concomitant]
  5. FORLAX (MACROGOL) [Concomitant]
  6. PHENOBARBITAL TAB [Concomitant]

REACTIONS (1)
  - CYTOLYTIC HEPATITIS [None]
